FAERS Safety Report 8551493-X (Version None)
Quarter: 2012Q3

REPORT INFORMATION
  Report Type: 
  Country: None (occurrence: None)
  Receive Date: 20120730
  Receipt Date: 20120718
  Transmission Date: 20120928
  Serious: Yes (Hospitalization)
  Sender: FDA-Public Use
  Company Number: IT-ROCHE-1072107

PATIENT
  Sex: Male
  Weight: 70 kg

DRUGS (4)
  1. CISPLATIN [Suspect]
     Indication: GASTRIC CANCER
     Dosage: LAST DOSE TAKEN: 80MG/M2
     Route: 042
     Dates: start: 20120405
  2. HERCEPTIN [Suspect]
     Indication: GASTRIC CANCER
     Route: 042
     Dates: start: 20120404
  3. PERTUZUMAB [Suspect]
     Indication: GASTRIC CANCER
     Route: 042
     Dates: start: 20120404
  4. XELODA [Suspect]
     Indication: GASTRIC CANCER
     Dosage: LAST DOSE TAKEN: 500MG/M2
     Route: 048
     Dates: start: 20120404

REACTIONS (4)
  - TROPONIN INCREASED [None]
  - EJECTION FRACTION DECREASED [None]
  - VENTRICULAR HYPOKINESIA [None]
  - N-TERMINAL PROHORMONE BRAIN NATRIURETIC PEPTIDE INCREASED [None]
